FAERS Safety Report 14588807 (Version 1)
Quarter: 2018Q1

REPORT INFORMATION
  Report Type: Spontaneous
  Country: DE (occurrence: DE)
  Receive Date: 20180301
  Receipt Date: 20180301
  Transmission Date: 20180509
  Serious: Yes (Other)
  Sender: FDA-Public Use
  Company Number: DE-GLAXOSMITHKLINE-DE2018028795

PATIENT
  Age: 42 Year
  Sex: Male

DRUGS (7)
  1. LAMOTRIGINE. [Suspect]
     Active Substance: LAMOTRIGINE
     Indication: SEIZURE
     Dosage: UNK
     Route: 065
  2. CLONAZEPAM. [Suspect]
     Active Substance: CLONAZEPAM
     Indication: SEIZURE
     Dosage: UNK
     Route: 065
  3. VALPROATE SODIUM. [Suspect]
     Active Substance: VALPROATE SODIUM
     Indication: SEIZURE
     Dosage: UNK
     Route: 065
  4. CARBAMAZEPINE. [Suspect]
     Active Substance: CARBAMAZEPINE
     Indication: SEIZURE
     Dosage: UNK
     Route: 065
  5. LEVETIRACETAM. [Suspect]
     Active Substance: LEVETIRACETAM
     Indication: SEIZURE
     Dosage: UNK
     Route: 065
  6. PHENYTOIN. [Suspect]
     Active Substance: PHENYTOIN
     Indication: SEIZURE
     Dosage: DAILY DOSE: 400 MG MILLIGRAM(S) EVERY DAY
     Route: 065
  7. VIGABATRIN. [Suspect]
     Active Substance: VIGABATRIN
     Indication: SEIZURE
     Dosage: UNK
     Route: 065

REACTIONS (14)
  - Ataxia [Recovering/Resolving]
  - Abnormal behaviour [Recovering/Resolving]
  - Postictal paralysis [Recovering/Resolving]
  - Thinking abnormal [Recovering/Resolving]
  - Feeling of despair [Recovering/Resolving]
  - Apathy [Recovering/Resolving]
  - Seizure [Recovering/Resolving]
  - Status epilepticus [Recovering/Resolving]
  - Asterixis [Recovering/Resolving]
  - Gait disturbance [Recovering/Resolving]
  - Dysmetria [Recovering/Resolving]
  - Fall [Recovering/Resolving]
  - Personality disorder [Recovering/Resolving]
  - Aggression [Recovering/Resolving]
